FAERS Safety Report 9230871 (Version 1)
Quarter: 2013Q2

REPORT INFORMATION
  Report Type: Spontaneous
  Country: US (occurrence: US)
  Receive Date: 20130415
  Receipt Date: 20130415
  Transmission Date: 20140414
  Serious: Yes (Death)
  Sender: FDA-Public Use
  Company Number: PHEH2013US008262

PATIENT
  Sex: 0

DRUGS (1)
  1. AFINITOR [Suspect]
     Indication: ASTROCYTOMA, LOW GRADE
     Route: 048

REACTIONS (2)
  - Obstruction [Fatal]
  - Neoplasm [Fatal]
